FAERS Safety Report 23351277 (Version 1)
Quarter: 2023Q4

REPORT INFORMATION
  Report Type: Spontaneous
  Country: FR (occurrence: None)
  Receive Date: 20231229
  Receipt Date: 20231229
  Transmission Date: 20240110
  Serious: Yes (Other)
  Sender: FDA-Public Use
  Company Number: 2023A290892

PATIENT
  Sex: Male
  Weight: 3.6 kg

DRUGS (4)
  1. QUETIAPINE [Suspect]
     Active Substance: QUETIAPINE
     Indication: Bipolar disorder
     Dates: end: 20220505
  2. LAMICTAL [Suspect]
     Active Substance: LAMOTRIGINE
     Indication: Bipolar disorder
     Dates: end: 20220505
  3. SERTRALINE [Suspect]
     Active Substance: SERTRALINE HYDROCHLORIDE
     Indication: Bipolar disorder
     Dates: end: 20220505
  4. OXAZEPAM [Concomitant]
     Active Substance: OXAZEPAM
     Dates: end: 20220505

REACTIONS (4)
  - Maternal exposure during pregnancy [Recovered/Resolved]
  - Neonatal respiratory distress [Recovered/Resolved]
  - Agitation [Not Recovered/Not Resolved]
  - Withdrawal syndrome [Recovered/Resolved]
